FAERS Safety Report 9133017 (Version 1)
Quarter: 2013Q1

REPORT INFORMATION
  Report Type: Spontaneous
  Country: LB (occurrence: LB)
  Receive Date: 20130301
  Receipt Date: 20130301
  Transmission Date: 20140127
  Serious: Yes (Hospitalization)
  Sender: FDA-Public Use
  Company Number: LB-ROCHE-1196928

PATIENT
  Age: 5 Year
  Sex: Female

DRUGS (4)
  1. ACTEMRA [Suspect]
     Indication: JUVENILE IDIOPATHIC ARTHRITIS
     Route: 065
  2. ACTEMRA [Suspect]
     Route: 065
     Dates: start: 20121226, end: 20121226
  3. ACTEMRA [Suspect]
     Route: 065
  4. MTX [Concomitant]

REACTIONS (1)
  - Juvenile idiopathic arthritis [Recovering/Resolving]
